FAERS Safety Report 17917138 (Version 1)
Quarter: 2020Q2

REPORT INFORMATION
  Report Type: Spontaneous
  Country: US (occurrence: US)
  Receive Date: 20200619
  Receipt Date: 20200619
  Transmission Date: 20200714
  Serious: Yes (Hospitalization)
  Sender: FDA-Public Use
  Company Number: None

PATIENT
  Age: 81 Year
  Sex: Male

DRUGS (20)
  1. LOSARTAN. [Concomitant]
     Active Substance: LOSARTAN
  2. HUMALOG [Concomitant]
     Active Substance: INSULIN LISPRO
  3. OMEPRAZOLE. [Concomitant]
     Active Substance: OMEPRAZOLE
  4. ROSUVASTATIN. [Concomitant]
     Active Substance: ROSUVASTATIN
  5. CITALOPRAM [Concomitant]
     Active Substance: CITALOPRAM HYDROBROMIDE
  6. ELIQUIS [Concomitant]
     Active Substance: APIXABAN
  7. TAMSULOSIN [Concomitant]
     Active Substance: TAMSULOSIN
  8. DESMOPRESSIN [Concomitant]
     Active Substance: DESMOPRESSIN
  9. JANUVIA [Concomitant]
     Active Substance: SITAGLIPTIN PHOSPHATE
  10. LEVEMIR [Concomitant]
     Active Substance: INSULIN DETEMIR
  11. CARVEDILOL. [Concomitant]
     Active Substance: CARVEDILOL
  12. FINASTERIDE. [Concomitant]
     Active Substance: FINASTERIDE
  13. MYRBETRIQ [Concomitant]
     Active Substance: MIRABEGRON
  14. NIFEDIPINE. [Concomitant]
     Active Substance: NIFEDIPINE
  15. MEGESTROL [Concomitant]
     Active Substance: MEGESTROL
  16. SERTRALINE [Concomitant]
     Active Substance: SERTRALINE HYDROCHLORIDE
  17. CAPECITABINE. [Suspect]
     Active Substance: CAPECITABINE
     Indication: COLON CANCER
     Dosage: ?          OTHER FREQUENCY:QD X14D THEN 7D OF;?
     Route: 048
     Dates: start: 20200409
  18. BD PEN NEEDL [Concomitant]
  19. FREESTYLE [Concomitant]
  20. GABAPENTIN. [Concomitant]
     Active Substance: GABAPENTIN

REACTIONS (5)
  - Diarrhoea [None]
  - Palmar-plantar erythrodysaesthesia syndrome [None]
  - Tongue eruption [None]
  - Oral pain [None]
  - Neoplasm malignant [None]

NARRATIVE: CASE EVENT DATE: 20200601
